FAERS Safety Report 7369357-6 (Version None)
Quarter: 2011Q1

REPORT INFORMATION
  Report Type: 
  Country: None (occurrence: None)
  Receive Date: 20110323
  Receipt Date: 20110318
  Transmission Date: 20110831
  Serious: Yes (Death)
  Sender: FDA-Public Use
  Company Number: FR-ROCHE-766516

PATIENT
  Sex: Male
  Weight: 72 kg

DRUGS (5)
  1. PEMETREXED [Suspect]
     Indication: NON-SMALL CELL LUNG CANCER
     Route: 042
     Dates: start: 20101125
  2. FOSINOPRIL SODIUM AND HYDROCHLOROTHIAZIDE [Concomitant]
     Route: 048
  3. CISPLATIN [Suspect]
     Indication: NON-SMALL CELL LUNG CANCER
     Route: 042
     Dates: start: 20101125
  4. ZANIDIP [Concomitant]
     Route: 048
  5. BEVACIZUMAB [Suspect]
     Indication: NON-SMALL CELL LUNG CANCER
     Route: 042
     Dates: start: 20101125

REACTIONS (2)
  - FALL [None]
  - DYSPNOEA [None]
